FAERS Safety Report 5755656-8 (Version None)
Quarter: 2008Q2

REPORT INFORMATION
  Report Type: 
  Country: None (occurrence: None)
  Receive Date: 20080530
  Receipt Date: 20080530
  Transmission Date: 20081010
  Serious: Yes (Hospitalization)
  Sender: FDA-Public Use
  Company Number: None

PATIENT
  Sex: Male
  Weight: 79.3795 kg

DRUGS (2)
  1. BENZONATATE [Suspect]
     Indication: COUGH
     Dosage: 1 3 X DAY PO
     Route: 048
     Dates: start: 20060905, end: 20080524
  2. BENZONATATE [Suspect]
     Indication: COUGH
     Dosage: 1 3 X DAY PO
     Route: 048
     Dates: start: 20080525, end: 20080527

REACTIONS (2)
  - DIZZINESS [None]
  - PHARMACEUTICAL PRODUCT COMPLAINT [None]
